FAERS Safety Report 9121865 (Version 1)
Quarter: 2013Q1

REPORT INFORMATION
  Report Type: Spontaneous
  Country: BR (occurrence: BR)
  Receive Date: 20130227
  Receipt Date: 20130227
  Transmission Date: 20140127
  Serious: Yes (Hospitalization, Other)
  Sender: FDA-Public Use
  Company Number: BR-ACCORD-016605

PATIENT
  Age: 79 Year
  Sex: Female
  Weight: 42 kg

DRUGS (5)
  1. GEMCITABINE [Suspect]
     Indication: MALIGNANT PERITONEAL NEOPLASM
     Dosage: EXPERIENCED EVENTS ON DAY 15 DOSING OF 2ND CYCLE AND DAY 1 (18-OCT-2012) DOSING OF 3RD CYCLE.
     Route: 042
     Dates: start: 20121018, end: 20121018
  2. OMEPRAZOLE [Concomitant]
     Route: 048
     Dates: start: 20121018, end: 20121018
  3. DEXAMETHASONE [Concomitant]
     Route: 042
     Dates: start: 20121018, end: 20121018
  4. ONDANSETRON [Concomitant]
     Route: 042
     Dates: start: 20121018, end: 20121018
  5. BROMOPRIDE [Concomitant]
     Route: 048
     Dates: start: 20121018, end: 20121018

REACTIONS (6)
  - Tremor [Recovered/Resolved]
  - Chills [Recovered/Resolved]
  - Hypotension [Recovered/Resolved]
  - Vomiting [Unknown]
  - Ascites [Unknown]
  - Off label use [Unknown]
